FAERS Safety Report 7823409-2 (Version None)
Quarter: 2011Q4

REPORT INFORMATION
  Report Type: 
  Country: None (occurrence: None)
  Receive Date: 20111014
  Receipt Date: 20111004
  Transmission Date: 20120403
  Serious: Yes (Other)
  Sender: FDA-Public Use
  Company Number: AUR-APL-2011-05396

PATIENT
  Age: 72 Year
  Sex: Male
  Weight: 39.0093 kg

DRUGS (3)
  1. METFORMIN HCL [Suspect]
     Dates: start: 20110101, end: 20110101
  2. HYZAAR (HYZAAR /01284801/) [Concomitant]
  3. VIAGRA [Suspect]
     Indication: ERECTILE DYSFUNCTION
     Dosage: (100 MG, AS REQUIRED), ORAL
     Route: 048
     Dates: start: 20110916

REACTIONS (2)
  - GLOMERULAR FILTRATION RATE DECREASED [None]
  - RENAL IMPAIRMENT [None]
